FAERS Safety Report 5699719-4 (Version None)
Quarter: 2008Q2

REPORT INFORMATION
  Report Type: 
  Country: None (occurrence: None)
  Receive Date: 20080410
  Receipt Date: 20080327
  Transmission Date: 20081010
  Serious: Yes (Hospitalization, Other)
  Sender: FDA-Public Use
  Company Number: PHBS2007JP21498

PATIENT
  Age: 52 Year
  Sex: Female
  Weight: 64 kg

DRUGS (9)
  1. ZOMETA [Suspect]
     Indication: METASTASES TO BONE
     Dosage: 4 MG, UNK
     Route: 042
     Dates: start: 20060913, end: 20070301
  2. ZOMETA [Suspect]
     Dosage: 4 MG, TIW
     Route: 042
     Dates: start: 20070411, end: 20071114
  3. HYSRON [Concomitant]
     Route: 048
     Dates: start: 20071031
  4. TAXOL [Concomitant]
     Dosage: 100 MG, UNK
     Route: 042
  5. DECADRON [Concomitant]
     Route: 048
  6. FEMARA [Concomitant]
     Dosage: UNK, UNK
     Dates: start: 20060901, end: 20070620
  7. AREDIA [Suspect]
     Indication: HYPERCALCAEMIA OF MALIGNANCY
     Dosage: 45 MG, UNK
     Route: 042
     Dates: start: 20050525, end: 20050601
  8. AREDIA [Suspect]
     Dosage: 45 MG, UNK
     Route: 042
     Dates: start: 20051201, end: 20060801
  9. AROMASIN [Concomitant]
     Dosage: 1 MG, UNK
     Route: 048

REACTIONS (20)
  - ABSCESS [None]
  - CARDIAC FAILURE [None]
  - CONVULSION [None]
  - DEBRIDEMENT [None]
  - DYSPNOEA [None]
  - HAEMOGLOBIN DECREASED [None]
  - HEPATIC STEATOSIS [None]
  - LOSS OF CONSCIOUSNESS [None]
  - LUNG NEOPLASM [None]
  - METASTASES TO LUNG [None]
  - METASTASES TO LYMPH NODES [None]
  - METASTASES TO SPINE [None]
  - OSTEONECROSIS [None]
  - PLEURAL EFFUSION [None]
  - PULMONARY ARTERY THROMBOSIS [None]
  - SPLENIC CYST [None]
  - SURGERY [None]
  - SWELLING [None]
  - TOOTH EXTRACTION [None]
  - TUMOUR MARKER INCREASED [None]
